FAERS Safety Report 7578564-9 (Version None)
Quarter: 2011Q2

REPORT INFORMATION
  Report Type: 
  Country: None (occurrence: None)
  Receive Date: 20110628
  Receipt Date: 20110613
  Transmission Date: 20111010
  Serious: Yes (Other)
  Sender: FDA-Public Use
  Company Number: US-BAYER-2011-051510

PATIENT
  Age: 61 Year
  Sex: Female
  Weight: 77 kg

DRUGS (2)
  1. PREDNISONE [Concomitant]
  2. ALEVE-D SINUS + COLD [Suspect]
     Route: 048

REACTIONS (6)
  - ERYTHEMA [None]
  - RASH [None]
  - COUGH [None]
  - PRURITUS [None]
  - OROPHARYNGEAL PAIN [None]
  - WHEEZING [None]
